FAERS Safety Report 13641625 (Version 1)
Quarter: 2017Q2

REPORT INFORMATION
  Report Type: Spontaneous
  Country: US (occurrence: US)
  Receive Date: 20170611
  Receipt Date: 20170611
  Transmission Date: 20170830
  Serious: Yes (Other)
  Sender: FDA-Public Use
  Company Number: None

PATIENT
  Age: 73 Year
  Sex: Female

DRUGS (1)
  1. AZITHROMYCIN ANHYDROUS. [Suspect]
     Active Substance: AZITHROMYCIN ANHYDROUS
     Indication: VIRAL UPPER RESPIRATORY TRACT INFECTION
     Dosage: ?          OTHER FREQUENCY:ZPAK DOSING;?
     Route: 048
     Dates: start: 20170413, end: 20170417

REACTIONS (1)
  - Anosmia [None]

NARRATIVE: CASE EVENT DATE: 20170603
